FAERS Safety Report 5335835-4 (Version None)
Quarter: 2007Q2

REPORT INFORMATION
  Report Type: 
  Country: None (occurrence: None)
  Receive Date: 20070320
  Receipt Date: 20060915
  Transmission Date: 20071010
  Serious: Yes (Other)
  Sender: FDA-Public Use
  Company Number: 147647USA

PATIENT
  Age: 52 Year
  Sex: Female
  Weight: 86.1834 kg

DRUGS (4)
  1. INDOMETHACIN [Suspect]
     Indication: PLANTAR FASCIITIS
     Dosage: (50 MG), ORAL
     Route: 048
     Dates: start: 20060801, end: 20060801
  2. LANSOPRAZOLE [Concomitant]
  3. OXYBUTYNIN CHLORIDE [Concomitant]
  4. PANTOPRAZOLE SODIUM [Concomitant]

REACTIONS (2)
  - ANAPHYLACTIC REACTION [None]
  - DYSPNOEA [None]
